FAERS Safety Report 19511389 (Version 1)
Quarter: 2021Q3

REPORT INFORMATION
  Report Type: Spontaneous
  Country: US (occurrence: US)
  Receive Date: 20210709
  Receipt Date: 20210709
  Transmission Date: 20211014
  Serious: Yes (Hospitalization)
  Sender: FDA-Public Use
  Company Number: None

PATIENT
  Age: 29 Year
  Sex: Male
  Weight: 89.1 kg

DRUGS (1)
  1. ATOM DELTA 8 GUMMIES [Suspect]
     Active Substance: .DELTA.8-TETRAHYDROCANNABINOL\HERBALS
     Indication: ANXIETY
     Route: 048
     Dates: start: 20210701, end: 20210701

REACTIONS (3)
  - Product measured potency issue [None]
  - Psychotic disorder [None]
  - Hypotension [None]

NARRATIVE: CASE EVENT DATE: 20210701
